FAERS Safety Report 10373650 (Version 1)
Quarter: 2014Q1

REPORT INFORMATION
  Report Type: Spontaneous
  Country: US (occurrence: None)
  Receive Date: 20140306
  Receipt Date: 20140306
  Transmission Date: 20141002
  Serious: Yes (Hospitalization, Other)
  Sender: FDA-Public Use
  Company Number: 163-21880-13033214

PATIENT
  Age: 80 Year
  Sex: Female
  Weight: 56.7 kg

DRUGS (9)
  1. REVLIMID (LENALIDOMIDE) (10 MILLIGRAM, CAPSULES) [Suspect]
     Indication: PLASMA CELL MYELOMA
     Dosage: 10MG,21 IN 21 D, PO
     Route: 048
     Dates: start: 20120411
  2. KLOR-CON (POTASSIUM CHLORIDE) (TABLETS) [Concomitant]
  3. TYLENOL (PARACETAMOL) [Concomitant]
  4. PANTOPRAZOLE SODIUM [Concomitant]
  5. DEXAMETHASONE [Concomitant]
  6. IRON (TABLETS) [Concomitant]
  7. ACYCLOVIR (CAPSULES) [Concomitant]
  8. ADULT LOW STRENGTH ASPIRIN (ACETYLSALICYLIC ACID) [Concomitant]
  9. VELCADE (BORTEZOMIB) [Concomitant]

REACTIONS (13)
  - Full blood count decreased [None]
  - Local swelling [None]
  - Clostridium difficile infection [None]
  - Pneumonia [None]
  - Fatigue [None]
  - Local swelling [None]
  - Increased upper airway secretion [None]
  - Renal disorder [None]
  - Balance disorder [None]
  - Increased tendency to bruise [None]
  - Cough [None]
  - Decreased appetite [None]
  - Herpes zoster [None]
